FAERS Safety Report 15079951 (Version 1)
Quarter: 2018Q2

REPORT INFORMATION
  Report Type: Report from Study
  Country: US (occurrence: US)
  Receive Date: 20180627
  Receipt Date: 20180627
  Transmission Date: 20180711
  Serious: Yes (Death, Other)
  Sender: FDA-Public Use
  Company Number: US-GILEAD-2018-0347356

PATIENT
  Age: 77 Year
  Sex: Female

DRUGS (3)
  1. ALBUTEROL                          /00139501/ [Concomitant]
     Active Substance: ALBUTEROL
     Indication: RESPIRATORY FAILURE
     Dosage: 3ML Q4HR PRN
     Dates: start: 20180601, end: 201806
  2. TOBRAMYCIN. [Concomitant]
     Active Substance: TOBRAMYCIN
     Indication: RESPIRATORY FAILURE
     Dosage: 300 MG BID FOR 2 WKS THEN 2 WKS OFF
     Dates: start: 20180601, end: 201806
  3. AZTREONAM LYSINE [Suspect]
     Active Substance: AZTREONAM LYSINE
     Indication: BRONCHIECTASIS
     Dosage: 75 MG, TID 28 DAYS ON 28 DAYS OFF
     Route: 055
     Dates: start: 20180508

REACTIONS (2)
  - Death [Fatal]
  - Off label use [Recovered/Resolved]

NARRATIVE: CASE EVENT DATE: 20180508
